FAERS Safety Report 6160503-9 (Version None)
Quarter: 2009Q2

REPORT INFORMATION
  Report Type: 
  Country: None (occurrence: None)
  Receive Date: 20090415
  Receipt Date: 20090415
  Transmission Date: 20091009
  Serious: Yes (Life-Threatening)
  Sender: FDA-Public Use
  Company Number: None

PATIENT
  Age: 55 Year
  Sex: Female
  Weight: 67.1324 kg

DRUGS (1)
  1. LEVAQUIN [Suspect]
     Indication: ACUTE SINUSITIS
     Dosage: 1 TABLET DAILY PO
     Route: 048
     Dates: start: 20090401, end: 20090406

REACTIONS (17)
  - DIARRHOEA [None]
  - DISTURBANCE IN ATTENTION [None]
  - DIZZINESS [None]
  - FEELING ABNORMAL [None]
  - HALLUCINATION [None]
  - HEADACHE [None]
  - HYPERAESTHESIA [None]
  - HYPOAESTHESIA [None]
  - INSOMNIA [None]
  - JOINT SWELLING [None]
  - NAUSEA [None]
  - PALPITATIONS [None]
  - PARAESTHESIA [None]
  - PHARYNGEAL OEDEMA [None]
  - SWELLING FACE [None]
  - THROAT TIGHTNESS [None]
  - TREMOR [None]
